FAERS Safety Report 19507608 (Version 2)
Quarter: 2021Q3

REPORT INFORMATION
  Report Type: Spontaneous
  Country: US (occurrence: US)
  Receive Date: 20210708
  Receipt Date: 20210916
  Transmission Date: 20211014
  Serious: No
  Sender: FDA-Public Use
  Company Number: US-BAYER-2021-170781

PATIENT
  Age: 78 Year
  Sex: Male
  Weight: 79.37 kg

DRUGS (1)
  1. GADAVIST [Suspect]
     Active Substance: GADOBUTROL
     Indication: MAGNETIC RESONANCE IMAGING JOINT
     Dosage: 8 ML IN LEFT AC, ONCE
     Route: 042
     Dates: start: 20210629, end: 20210629

REACTIONS (1)
  - Chills [Recovered/Resolved]

NARRATIVE: CASE EVENT DATE: 20210629
